FAERS Safety Report 21327099 (Version 7)
Quarter: 2022Q4

REPORT INFORMATION
  Report Type: Report from Study
  Country: KR (occurrence: None)
  Receive Date: 20220913
  Receipt Date: 20221116
  Transmission Date: 20230113
  Serious: Yes (Hospitalization, Disabling)
  Sender: FDA-Public Use
  Company Number: KR-ROCHE-3171731

PATIENT
  Age: 58 Year
  Sex: Male
  Weight: 56 kg

DRUGS (9)
  1. ATEZOLIZUMAB [Suspect]
     Active Substance: ATEZOLIZUMAB
     Indication: Lung neoplasm malignant
     Dosage: DOSE LAST STUDY DRUG ADMIN PRIOR AE: 1680 MG
     Route: 041
     Dates: start: 20220802
  2. TIRAGOLUMAB [Suspect]
     Active Substance: TIRAGOLUMAB
     Indication: Lung neoplasm malignant
     Dosage: DOSE LAST STUDY DRUG ADMIN PRIOR AE: 840 MG?START DATE OF MOST RECENT DOSE OF STUDY DRUG PRIOR TO AE
     Route: 042
     Dates: start: 20220802
  3. ZEMIMET SR [Concomitant]
     Indication: Diabetes mellitus
     Dosage: 25/1000MG TAB
     Dates: start: 20150303
  4. CRESTOR [Concomitant]
     Active Substance: ROSUVASTATIN CALCIUM
     Indication: Hyperlipidaemia
     Dates: start: 20150303
  5. CODEINE PHOSPHATE [Concomitant]
     Active Substance: CODEINE PHOSPHATE
     Indication: Cough
     Dates: start: 20220624
  6. ACETAMINOPHEN [Concomitant]
     Active Substance: ACETAMINOPHEN
     Indication: Arthralgia
     Dates: start: 20220816
  7. SARIDON S (SOUTH KOREA) [Concomitant]
     Indication: Arthralgia
     Dates: start: 20220815, end: 20220815
  8. FAMOTIDINE [Concomitant]
     Active Substance: FAMOTIDINE
     Dates: start: 20220830
  9. AMMONIUM CHLORIDE;CHLORPHENIRAMINE MALEATE;DIHYDROCODEINE;METHYLEPHEDR [Concomitant]
     Indication: Cough
     Dates: start: 20220520

REACTIONS (4)
  - Muscular weakness [Recovered/Resolved]
  - Immune-mediated myositis [Recovering/Resolving]
  - Tenosynovitis [Recovering/Resolving]
  - Joint range of motion decreased [Recovering/Resolving]

NARRATIVE: CASE EVENT DATE: 20220830
